FAERS Safety Report 19031728 (Version 1)
Quarter: 2021Q1

REPORT INFORMATION
  Report Type: Spontaneous
  Country: US (occurrence: US)
  Receive Date: 20210319
  Receipt Date: 20210319
  Transmission Date: 20210420
  Serious: Yes (Hospitalization)
  Sender: FDA-Public Use
  Company Number: US-PFIZER INC-2021265502

PATIENT
  Age: 47 Year
  Sex: Female
  Weight: 65.77 kg

DRUGS (2)
  1. DEPO?PROVERA [Suspect]
     Active Substance: MEDROXYPROGESTERONE ACETATE
     Indication: POLYCYSTIC OVARIES
     Dosage: UNK
     Dates: start: 202006, end: 202006
  2. DEPO?PROVERA [Suspect]
     Active Substance: MEDROXYPROGESTERONE ACETATE
     Indication: ENDOMETRIOSIS

REACTIONS (15)
  - Ovulation pain [Unknown]
  - Pyrexia [Recovered/Resolved]
  - Amenorrhoea [Not Recovered/Not Resolved]
  - Postural orthostatic tachycardia syndrome [Recovered/Resolved]
  - Fibrin D dimer increased [Recovered/Resolved]
  - Therapeutic response unexpected [Unknown]
  - Dizziness [Recovered/Resolved]
  - Night sweats [Recovered/Resolved]
  - Headache [Recovering/Resolving]
  - Dyspnoea [Recovered/Resolved]
  - Cyst [Unknown]
  - Chest pain [Recovered/Resolved]
  - Palpitations [Recovered/Resolved]
  - Dehydration [Unknown]
  - Off label use [Unknown]

NARRATIVE: CASE EVENT DATE: 202006
